FAERS Safety Report 8364917-8 (Version None)
Quarter: 2012Q2

REPORT INFORMATION
  Report Type: 
  Country: None (occurrence: None)
  Receive Date: 20120516
  Receipt Date: 20120507
  Transmission Date: 20120825
  Serious: Yes (Life-Threatening, Hospitalization, Other)
  Sender: FDA-Public Use
  Company Number: TR-B.I. PHARMACEUTICALS,INC./RIDGEFIELD-2012-EU-02283GD

PATIENT
  Age: 50 Year
  Sex: Male

DRUGS (2)
  1. RANITIDINE [Suspect]
     Indication: DYSPEPSIA
     Dosage: A TABLET
     Route: 048
  2. RANITIDINE [Suspect]
     Dosage: 50 MG
     Route: 042

REACTIONS (16)
  - DIZZINESS [None]
  - CYANOSIS [None]
  - HYPOTENSION [None]
  - SYNCOPE [None]
  - COLD SWEAT [None]
  - RESPIRATORY FAILURE [None]
  - CONFUSIONAL STATE [None]
  - MALAISE [None]
  - SINUS TACHYCARDIA [None]
  - ELECTROCARDIOGRAM ST SEGMENT ELEVATION [None]
  - ACUTE CORONARY SYNDROME [None]
  - AGITATION [None]
  - DYSPEPSIA [None]
  - ANAPHYLACTIC REACTION [None]
  - BRONCHOSPASM [None]
  - HYPOXIA [None]
